FAERS Safety Report 6298021-X (Version None)
Quarter: 2009Q3

REPORT INFORMATION
  Report Type: 
  Country: None (occurrence: None)
  Receive Date: 20090805
  Receipt Date: 20090415
  Transmission Date: 20100115
  Serious: Yes (Hospitalization)
  Sender: FDA-Public Use
  Company Number: FR-JNJFOC-20090506214

PATIENT
  Age: 74 Year
  Sex: Female

DRUGS (14)
  1. TRAMADOL HCL [Suspect]
     Indication: PAIN
     Route: 048
  2. IXPRIM [Suspect]
     Indication: PAIN
     Route: 048
  3. ALTIM [Suspect]
     Indication: RADICULOPATHY
     Route: 042
  4. PROPOFAN (LEPETIT) [Suspect]
     Indication: PAIN
     Route: 048
  5. DOLIPRANE [Suspect]
     Indication: PAIN
     Route: 048
  6. ACUPAN [Concomitant]
     Route: 065
  7. RIVOTRIL [Concomitant]
     Route: 065
  8. METHOCARBAMOL [Concomitant]
     Route: 065
  9. MIOREL [Concomitant]
     Route: 065
  10. UTEPLEX [Concomitant]
     Route: 065
  11. STEROGYL (ERGOCALCIFEROL,HYDROQUINONE) [Concomitant]
     Route: 065
  12. UVEDOSE [Concomitant]
     Route: 065
  13. MAGNE- B6 [Concomitant]
     Route: 065
  14. LEVOTHYROX [Concomitant]
     Indication: SECONDARY HYPOTHYROIDISM

REACTIONS (10)
  - BALANCE DISORDER [None]
  - BLINDNESS TRANSIENT [None]
  - CONVERSION DISORDER [None]
  - DRUG INEFFECTIVE [None]
  - FATIGUE [None]
  - HEADACHE [None]
  - MONOPLEGIA [None]
  - MUSCULAR WEAKNESS [None]
  - NAUSEA [None]
  - PARAESTHESIA [None]
